FAERS Safety Report 20832576 (Version 1)
Quarter: 2022Q2

REPORT INFORMATION
  Report Type: 
  Country: None (occurrence: None)
  Receive Date: 20220516
  Receipt Date: 20220516
  Transmission Date: 20220720
  Serious: No
  Sender: FDA-Public Use
  Company Number: US-ROCHE-2995766

PATIENT
  Weight: 89.3 kg

DRUGS (5)
  1. ATEZOLIZUMAB [Suspect]
     Active Substance: ATEZOLIZUMAB
     Dates: start: 20210326
  2. ATEZOLIZUMAB [Suspect]
     Active Substance: ATEZOLIZUMAB
     Dates: start: 20210312
  3. OXALIPLATIN [Suspect]
     Active Substance: OXALIPLATIN
     Dosage: DATE OF MOST RECENT DOSE : 26/MAR/2021
     Dates: start: 20210312
  4. GEMCITABINE HYDROCHLORIDE [Suspect]
     Active Substance: GEMCITABINE HYDROCHLORIDE
     Dosage: MOST RECENT DOSE : 26/MAR/2021
     Dates: start: 20210312
  5. RITUXIMAB [Suspect]
     Active Substance: RITUXIMAB
     Dosage: DATE OF MOST RECENT DOSE : 26/MAR/2021
     Dates: start: 20210312

REACTIONS (5)
  - Infusion related reaction [None]
  - Dermatitis [None]
  - Acute kidney injury [None]
  - Rash maculo-papular [None]
  - Dermatitis bullous [None]

NARRATIVE: CASE EVENT DATE: 20210326
